FAERS Safety Report 15305400 (Version 1)
Quarter: 2018Q3

REPORT INFORMATION
  Report Type: Spontaneous
  Country: US (occurrence: US)
  Receive Date: 20180810
  Receipt Date: 20180810
  Transmission Date: 20181010
  Serious: Yes (Other)
  Sender: FDA-Public Use
  Company Number: None

PATIENT
  Age: 95 Year
  Sex: Male
  Weight: 60.3 kg

DRUGS (13)
  1. RAPAFLO [Concomitant]
     Active Substance: SILODOSIN
     Dates: start: 20180804
  2. DEXTROSE 5% [Concomitant]
     Active Substance: DEXTROSE
     Dates: start: 20180804, end: 20180805
  3. DELZICOL [Concomitant]
     Active Substance: MESALAMINE
     Dates: start: 20180805
  4. ACETAMINOPHEN. [Suspect]
     Active Substance: ACETAMINOPHEN
     Indication: PAIN
     Route: 048
     Dates: start: 20180804, end: 20180807
  5. LOVENOX [Concomitant]
     Active Substance: ENOXAPARIN SODIUM
     Dates: start: 20180804
  6. FERROUS SULFATE. [Concomitant]
     Active Substance: FERROUS SULFATE
     Dates: start: 20180806
  7. ZANTAC [Concomitant]
     Active Substance: RANITIDINE HYDROCHLORIDE
     Dates: start: 20180804
  8. KEFLEX [Concomitant]
     Active Substance: CEPHALEXIN
     Dates: start: 20180806, end: 20180809
  9. FOLIC ACID. [Concomitant]
     Active Substance: FOLIC ACID
     Dates: start: 20180804, end: 20180806
  10. LOPRESSOR [Concomitant]
     Active Substance: METOPROLOL TARTRATE
     Dates: start: 20180804
  11. MIRALAX [Concomitant]
     Active Substance: POLYETHYLENE GLYCOL 3350
     Dates: start: 20180804, end: 20180806
  12. CEFAZOLIN [Concomitant]
     Active Substance: CEFAZOLIN
     Dates: start: 20180804, end: 20180806
  13. THIAMINE [Concomitant]
     Active Substance: THIAMINE
     Dates: start: 20180804

REACTIONS (2)
  - Alanine aminotransferase increased [None]
  - Therapy change [None]

NARRATIVE: CASE EVENT DATE: 20180808
